FAERS Safety Report 7136101-7 (Version None)
Quarter: 2010Q4

REPORT INFORMATION
  Report Type: 
  Country: None (occurrence: None)
  Receive Date: 20101204
  Receipt Date: 20101112
  Transmission Date: 20110411
  Serious: Yes (Hospitalization)
  Sender: FDA-Public Use
  Company Number: US-BAYER-201023575NA

PATIENT

DRUGS (2)
  1. YASMIN [Suspect]
     Indication: ORAL CONTRACEPTION
     Route: 048
     Dates: start: 20090801, end: 20100115
  2. FEXOFENDAINE NOS [Concomitant]
     Route: 048
     Dates: start: 20091113

REACTIONS (4)
  - DEEP VEIN THROMBOSIS [None]
  - MITRAL VALVE INCOMPETENCE [None]
  - PULMONARY EMBOLISM [None]
  - TRICUSPID VALVE INCOMPETENCE [None]
